FAERS Safety Report 4412011-0 (Version None)
Quarter: 2004Q3

REPORT INFORMATION
  Report Type: 
  Country: None (occurrence: None)
  Receive Date: 20040728
  Receipt Date: 20040721
  Transmission Date: 20050211
  Serious: Yes (Life-Threatening)
  Sender: FDA-Public Use
  Company Number: 139041USA

PATIENT
  Age: 58 Year
  Sex: Female
  Weight: 67.1324 kg

DRUGS (4)
  1. CARBAMAZEPINE [Suspect]
     Indication: ANALGESIC EFFECT
     Dosage: 400 MILLIGRAM BID ORAL
     Route: 048
     Dates: start: 20030811, end: 20031001
  2. DIABETIC MEDICATION NOS [Concomitant]
  3. PREDNISONE TAB [Concomitant]
  4. ELAVIL [Concomitant]

REACTIONS (1)
  - SUICIDAL IDEATION [None]
